FAERS Safety Report 14973938 (Version 1)
Quarter: 2018Q2

REPORT INFORMATION
  Report Type: Spontaneous
  Country: GB (occurrence: GB)
  Receive Date: 20180605
  Receipt Date: 20180605
  Transmission Date: 20180711
  Serious: Yes (Death)
  Sender: FDA-Public Use
  Company Number: GB-009507513-1806GBR000239

PATIENT
  Age: 30 Year
  Sex: Male
  Weight: 84 kg

DRUGS (1)
  1. MIRTAZAPINE. [Suspect]
     Active Substance: MIRTAZAPINE
     Dosage: 27 DF, UNK
     Dates: start: 201210, end: 201210

REACTIONS (2)
  - Accidental overdose [Fatal]
  - Victim of crime [Fatal]

NARRATIVE: CASE EVENT DATE: 201210
